FAERS Safety Report 5273613-5 (Version None)
Quarter: 2007Q1

REPORT INFORMATION
  Report Type: 
  Country: None (occurrence: None)
  Receive Date: 20070323
  Receipt Date: 20070312
  Transmission Date: 20070707
  Serious: Yes (Other)
  Sender: FDA-Public Use
  Company Number: PHEH2007US03062

PATIENT
  Age: 64 Year
  Sex: Male

DRUGS (11)
  1. DIOVAN [Suspect]
     Indication: HYPERTENSION
     Dosage: 80MG , QD
     Dates: start: 20070206, end: 20070212
  2. LISINOPRIL [Concomitant]
     Dosage: 20MG, UNK
  3. NORVASC [Concomitant]
     Dosage: 10MG, UNK
  4. DYAZIDE [Concomitant]
     Dosage: 12.5MG, UNK
  5. POTASSIUM CHLORIDE [Concomitant]
     Dosage: 10MEQ, UNK
  6. PRILOSEC [Concomitant]
     Dosage: 20MG, UNK
  7. LEXAPRO [Concomitant]
     Indication: DEPRESSION
     Dosage: UNK, UNK
  8. LORAZEPAM [Concomitant]
     Dosage: 0.5MG, UNK
  9. TRAVATAN [Concomitant]
     Dosage: UNK, UNK
  10. AZOPT [Concomitant]
     Dosage: UNK, UNK
  11. ASPIRIN [Concomitant]
     Dosage: 81MG, UNK

REACTIONS (1)
  - URINARY RETENTION [None]
